FAERS Safety Report 13148727 (Version 1)
Quarter: 2017Q1

REPORT INFORMATION
  Report Type: Spontaneous
  Country: US (occurrence: US)
  Receive Date: 20170125
  Receipt Date: 20170125
  Transmission Date: 20170428
  Serious: No
  Sender: FDA-Public Use
  Company Number: US-PFIZER INC-2017030984

PATIENT
  Age: 32 Year
  Sex: Male
  Weight: 52 kg

DRUGS (2)
  1. CORTEF [Concomitant]
     Active Substance: HYDROCORTISONE
     Indication: ADDISON^S DISEASE
     Dosage: UNK
     Route: 048
     Dates: start: 20161201
  2. GENOTROPIN [Suspect]
     Active Substance: SOMATROPIN
     Indication: HYPOPITUITARISM
     Dosage: 0.6 MG, 1X/DAY
     Dates: start: 20170109

REACTIONS (4)
  - Mood altered [Unknown]
  - Blood glucose increased [Unknown]
  - Intentional product use issue [Unknown]
  - Increased appetite [Unknown]

NARRATIVE: CASE EVENT DATE: 20170116
